FAERS Safety Report 10222281 (Version 1)
Quarter: 2014Q2

REPORT INFORMATION
  Report Type: Spontaneous
  Country: US (occurrence: US)
  Receive Date: 20140606
  Receipt Date: 20140606
  Transmission Date: 20141212
  Serious: No
  Sender: FDA-Public Use
  Company Number: US-GILEAD-2014-0104204

PATIENT
  Age: 67 Year
  Sex: Male

DRUGS (10)
  1. RANEXA [Suspect]
     Indication: PRODUCT USED FOR UNKNOWN INDICATION
     Dosage: UNK
     Route: 048
     Dates: end: 20140505
  2. SLO-NIACIN [Suspect]
     Indication: HIGH DENSITY LIPOPROTEIN INCREASED
     Dosage: 250 MG, QD
     Route: 048
     Dates: start: 20140424, end: 20140430
  3. SILDENAFIL [Concomitant]
  4. PLAVIX [Concomitant]
  5. FLUTICASONE [Concomitant]
  6. LOSARTAN POTASSIUM/HYDROCHLOROTHIAZIDE [Concomitant]
  7. BYSTOLIC [Concomitant]
  8. AMLODIPINE [Concomitant]
  9. ASPIRIN [Concomitant]
  10. GLUCOSAMINE [Concomitant]

REACTIONS (2)
  - Blood pressure systolic decreased [Recovered/Resolved]
  - Vision blurred [Recovered/Resolved]
